FAERS Safety Report 22354979 (Version 2)
Quarter: 2023Q2

REPORT INFORMATION
  Report Type: Spontaneous
  Country: US (occurrence: US)
  Receive Date: 20230523
  Receipt Date: 20230531
  Transmission Date: 20230722
  Serious: No
  Sender: FDA-Public Use
  Company Number: US-PFIZER INC-PV202200122026

PATIENT
  Age: 38 Year
  Sex: Male

DRUGS (1)
  1. CAMPTOSAR [Suspect]
     Active Substance: IRINOTECAN HYDROCHLORIDE
     Dosage: UNK (VIAL SIZE 40 MG AND 100 MG, FREQUENCY: Q 2 WEEKS)
     Dates: start: 20221017

REACTIONS (1)
  - Weight decreased [Unknown]
